FAERS Safety Report 17602070 (Version 3)
Quarter: 2020Q3

REPORT INFORMATION
  Report Type: Report from Study
  Country: US (occurrence: US)
  Receive Date: 20200331
  Receipt Date: 20200728
  Transmission Date: 20201102
  Serious: No
  Sender: FDA-Public Use
  Company Number: NVSC2020US087943

PATIENT
  Age: 65 Year
  Sex: Female

DRUGS (1)
  1. EXTAVIA [Suspect]
     Active Substance: INTERFERON BETA-1B
     Indication: MULTIPLE SCLEROSIS
     Dosage: UNK
     Route: 050
     Dates: start: 20200219, end: 20200302

REACTIONS (2)
  - Injection site pain [Unknown]
  - Injection site irritation [Unknown]

NARRATIVE: CASE EVENT DATE: 20200219
